FAERS Safety Report 12983987 (Version 1)
Quarter: 2016Q4

REPORT INFORMATION
  Report Type: Report from Study
  Country: None (occurrence: NL)
  Receive Date: 20161129
  Receipt Date: 20161129
  Transmission Date: 20170207
  Serious: Yes (Hospitalization, Other)
  Sender: FDA-Public Use
  Company Number: NL-ABBVIE-16K-114-1735565-00

PATIENT
  Sex: Male
  Weight: 75 kg

DRUGS (3)
  1. FLAGYL [Concomitant]
     Active Substance: METRONIDAZOLE\METRONIDAZOLE HYDROCHLORIDE
     Indication: PRODUCT USED FOR UNKNOWN INDICATION
     Dates: start: 20160107, end: 20160111
  2. METFORMINE [Concomitant]
     Active Substance: METFORMIN HYDROCHLORIDE
     Indication: DIARRHOEA
     Dates: start: 20101124
  3. DUODOPA [Suspect]
     Active Substance: CARBIDOPA\LEVODOPA
     Indication: PARKINSON^S DISEASE
     Dosage: MD: 19.5, CD: 8.8, ED: 9.0, NO NIGHT DOSE
     Route: 050
     Dates: start: 20130515, end: 201609

REACTIONS (7)
  - Paraesthesia [Unknown]
  - Sensory disturbance [Unknown]
  - General physical health deterioration [Not Recovered/Not Resolved]
  - Muscular weakness [Not Recovered/Not Resolved]
  - Polyneuropathy [Recovered/Resolved with Sequelae]
  - Hypoaesthesia [Unknown]
  - Joint vibration [Unknown]

NARRATIVE: CASE EVENT DATE: 2016
